FAERS Safety Report 4688584-X (Version None)
Quarter: 2005Q2

REPORT INFORMATION
  Report Type: 
  Country: None (occurrence: None)
  Receive Date: 20050613
  Receipt Date: 20050609
  Transmission Date: 20051028
  Serious: Yes (Hospitalization, Other)
  Sender: FDA-Public Use
  Company Number: US-RB-1734-2005

PATIENT
  Sex: Male
  Weight: 76.27 kg

DRUGS (11)
  1. SUBOXONE [Suspect]
     Indication: DRUG DEPENDENCE
     Route: 060
     Dates: start: 20041103, end: 20041208
  2. MEDICINALPRODUCT NOT SPECIFIED BY SENDER [Concomitant]
     Indication: CONSTIPATION
  3. MEDICINALPRODUCT NOT SPECIFIED BY SENDER [Concomitant]
     Route: 048
  4. MEDICINALPRODUCT NOT SPECIFIED BY SENDER [Concomitant]
  5. MAGNESIUM CITRATE [Concomitant]
  6. LOPERAMIDE HYDROCHLORIDE [Concomitant]
  7. MEDICINALPRODUCT NOT SPECIFIED BY SENDER [Concomitant]
  8. MEDICINALPRODUCT NOT SPECIFIED BY SENDER [Concomitant]
  9. IBUPROFEN [Concomitant]
  10. SOMINEX [Concomitant]
  11. MULTI-VITAMINS [Concomitant]

REACTIONS (5)
  - CONDITION AGGRAVATED [None]
  - CONSTIPATION [None]
  - PROCTALGIA [None]
  - RECTAL PROLAPSE [None]
  - TREATMENT NONCOMPLIANCE [None]
